FAERS Safety Report 7884454-4 (Version None)
Quarter: 2011Q4

REPORT INFORMATION
  Report Type: 
  Country: None (occurrence: None)
  Receive Date: 20111102
  Receipt Date: 20111026
  Transmission Date: 20120403
  Serious: Yes (Other)
  Sender: FDA-Public Use
  Company Number: GB-JNJFOC-20110907242

PATIENT
  Age: 43 Year
  Sex: Male
  Weight: 65 kg

DRUGS (5)
  1. TRAMADOL HCL [Concomitant]
     Dosage: AS NEEDED
     Route: 048
     Dates: end: 20110908
  2. TRAMADOL HCL [Concomitant]
     Indication: ARTHRALGIA
     Dosage: 1 DF AS NEEDED
     Route: 048
     Dates: start: 20110901, end: 20110908
  3. CHANTIX [Suspect]
     Indication: PRODUCT USED FOR UNKNOWN INDICATION
     Route: 048
     Dates: start: 20110622, end: 20110907
  4. ACETAMINOPHEN [Suspect]
     Indication: JOINT INJURY
     Route: 048
     Dates: start: 20110901, end: 20110908
  5. ACETAMINOPHEN [Suspect]
     Route: 048
     Dates: start: 20110901, end: 20110908

REACTIONS (1)
  - HAEMATURIA [None]
